FAERS Safety Report 16595871 (Version 6)
Quarter: 2022Q2

REPORT INFORMATION
  Report Type: Report from Study
  Country: SE (occurrence: SE)
  Receive Date: 20190719
  Receipt Date: 20220621
  Transmission Date: 20220721
  Serious: Yes (Other)
  Sender: FDA-Public Use
  Company Number: SE-ABBVIE-19K-150-2855444-00

PATIENT
  Sex: Female
  Weight: 80 kg

DRUGS (7)
  1. CARBIDOPA\LEVODOPA [Suspect]
     Active Substance: CARBIDOPA\LEVODOPA
     Indication: Parkinson^s disease
     Dosage: THERAPY DURATION: REMAINS AT 16H
     Route: 050
     Dates: start: 20140609, end: 2014
  2. CARBIDOPA\LEVODOPA [Suspect]
     Active Substance: CARBIDOPA\LEVODOPA
     Dosage: MD: 13 ML CD 3.3-5.3 ML/H, ED: 2 ML?REMAINS AT 16H
     Route: 050
     Dates: start: 20140722
  3. CARBIDOPA\LEVODOPA [Suspect]
     Active Substance: CARBIDOPA\LEVODOPA
     Dosage: CURRENT DOSAGE: MORNING DOSE: 5ML, CONTINUOUS DOSE 07AM - 05PM: 6.5ML/H
     Route: 050
     Dates: start: 20220615
  4. CARBIDOPA\LEVODOPA [Suspect]
     Active Substance: CARBIDOPA\LEVODOPA
     Dosage: CURRENT DOSAGE: CONTINUOUS DOSE 05PM - 10PM: 7.5ML/H,?CONTINUOUS DOSE NIGHT: 6.0ML/H.
     Route: 050
     Dates: start: 20220615
  5. CARBIDOPA\LEVODOPA [Suspect]
     Active Substance: CARBIDOPA\LEVODOPA
     Dosage: CURRENT DOSAGE: THERAPY DURATION: GOES TO 24 HOURS
     Route: 050
     Dates: start: 20220615
  6. LEVOCAR [Concomitant]
     Indication: Product used for unknown indication
     Dosage: 200/50 MG
     Route: 048
  7. XADAGO [Concomitant]
     Active Substance: SAFINAMIDE MESYLATE
     Indication: Product used for unknown indication
     Route: 048

REACTIONS (15)
  - Kyphosis [Recovered/Resolved]
  - Arthrodesis [Unknown]
  - Muscle tightness [Not Recovered/Not Resolved]
  - Musculoskeletal discomfort [Unknown]
  - Muscular weakness [Not Recovered/Not Resolved]
  - Stoma site erythema [Not Recovered/Not Resolved]
  - Back disorder [Unknown]
  - Back disorder [Not Recovered/Not Resolved]
  - Fungal infection [Not Recovered/Not Resolved]
  - Gait disturbance [Unknown]
  - Weight increased [Recovered/Resolved]
  - Weight decreased [Recovered/Resolved]
  - Fall [Not Recovered/Not Resolved]
  - Pain [Recovered/Resolved]
  - Pain [Unknown]

NARRATIVE: CASE EVENT DATE: 20180101
